FAERS Safety Report 15764718 (Version 1)
Quarter: 2018Q4

REPORT INFORMATION
  Report Type: Spontaneous
  Country: US (occurrence: US)
  Receive Date: 20181227
  Receipt Date: 20181227
  Transmission Date: 20190205
  Serious: Yes (Hospitalization)
  Sender: FDA-Public Use
  Company Number: US-HORIZON-RAV-0243-2018

PATIENT
  Age: 9 Month
  Sex: Male

DRUGS (1)
  1. RAVICTI [Suspect]
     Active Substance: GLYCEROL PHENYLBUTYRATE
     Indication: ARGININOSUCCINATE SYNTHETASE DEFICIENCY
     Dosage: 1 ML 3 X /DAY
     Route: 048
     Dates: start: 20180705

REACTIONS (5)
  - Ear infection [Recovering/Resolving]
  - Ammonia abnormal [Recovering/Resolving]
  - Corona virus infection [Recovering/Resolving]
  - Bronchitis [Recovering/Resolving]
  - Mycoplasma infection [Recovering/Resolving]

NARRATIVE: CASE EVENT DATE: 20181216
